FAERS Safety Report 10164547 (Version 2)
Quarter: 2014Q2

REPORT INFORMATION
  Report Type: Spontaneous
  Country: US (occurrence: US)
  Receive Date: 20140510
  Receipt Date: 20140510
  Transmission Date: 20141212
  Serious: No
  Sender: FDA-Public Use
  Company Number: US-BRISTOL-MYERS SQUIBB COMPANY-20107769

PATIENT
  Age: 49 Year
  Sex: Female
  Weight: 95.24 kg

DRUGS (1)
  1. BYDUREON [Suspect]
     Route: 058

REACTIONS (6)
  - Urticaria [Unknown]
  - Weight decreased [Unknown]
  - Constipation [Unknown]
  - Injection site haematoma [Unknown]
  - Pruritus [Unknown]
  - Off label use [Unknown]
